FAERS Safety Report 8430173-5 (Version None)
Quarter: 2012Q2

REPORT INFORMATION
  Report Type: 
  Country: None (occurrence: None)
  Receive Date: 20120612
  Receipt Date: 20120607
  Transmission Date: 20120825
  Serious: Yes (Hospitalization)
  Sender: FDA-Public Use
  Company Number: FR-ROCHE-1076879

PATIENT
  Sex: Male
  Weight: 76 kg

DRUGS (2)
  1. ROFERON-A [Suspect]
     Indication: METASTATIC RENAL CELL CARCINOMA
     Dosage: 9 MIU
     Route: 065
     Dates: start: 20100212
  2. AVASTIN [Suspect]
     Indication: METASTATIC RENAL CELL CARCINOMA
     Route: 065
     Dates: start: 20100212, end: 20100604

REACTIONS (1)
  - EPILEPSY [None]
